FAERS Safety Report 15373517 (Version 2)
Quarter: 2019Q1

REPORT INFORMATION
  Report Type: Spontaneous
  Country: US (occurrence: US)
  Receive Date: 20180912
  Receipt Date: 20190117
  Transmission Date: 20190417
  Serious: No
  Sender: FDA-Public Use
  Company Number: US-GLENMARK PHARMACEUTICALS-2018GMK036490

PATIENT

DRUGS (2)
  1. MUPIROCIN. [Suspect]
     Active Substance: MUPIROCIN
     Indication: BURNS SECOND DEGREE
     Dosage: UNK
     Route: 065
     Dates: end: 201806
  2. MUPIROCIN. [Suspect]
     Active Substance: MUPIROCIN
     Indication: LIP BLISTER

REACTIONS (5)
  - Accidental exposure to product [Unknown]
  - Tongue discomfort [Recovered/Resolved]
  - Drug effective for unapproved indication [Unknown]
  - Stomatitis [Recovered/Resolved]
  - Dysgeusia [Recovered/Resolved]

NARRATIVE: CASE EVENT DATE: 201806
